FAERS Safety Report 18033689 (Version 2)
Quarter: 2020Q3

REPORT INFORMATION
  Report Type: Spontaneous
  Country: US (occurrence: US)
  Receive Date: 20200716
  Receipt Date: 20200812
  Transmission Date: 20201103
  Serious: Yes (Life-Threatening, Other)
  Sender: FDA-Public Use
  Company Number: US-PFIZER INC-2020264780

PATIENT
  Age: 12 Day
  Sex: Male

DRUGS (3)
  1. TISSUE PLASMINOGEN ACTIVATOR, RECOMBINATIVE [Suspect]
     Active Substance: ALTEPLASE
     Indication: AORTIC THROMBOSIS
     Dosage: UNK
  2. HEPARIN SODIUM. [Suspect]
     Active Substance: HEPARIN SODIUM
     Dosage: UNK (INCREASED TO A MAXIMUM OF 33.6 UNITS/KG/HOUR)
  3. HEPARIN SODIUM. [Suspect]
     Active Substance: HEPARIN SODIUM
     Indication: AORTIC THROMBOSIS
     Dosage: UNK (10 UNITS/KG/HOUR)

REACTIONS (2)
  - Pulmonary haemorrhage neonatal [Recovering/Resolving]
  - Drug ineffective [Unknown]
